FAERS Safety Report 7157166-2 (Version None)
Quarter: 2010Q4

REPORT INFORMATION
  Report Type: 
  Country: None (occurrence: None)
  Receive Date: 20101214
  Receipt Date: 20091215
  Transmission Date: 20110411
  Serious: No
  Sender: FDA-Public Use
  Company Number: US-ASTRAZENECA-2009SE32113

PATIENT
  Sex: Female

DRUGS (10)
  1. CRESTOR [Suspect]
     Indication: BLOOD CHOLESTEROL INCREASED
     Route: 048
  2. CRESTOR [Suspect]
     Route: 048
     Dates: start: 20090701
  3. ZETIA [Concomitant]
  4. PLAVIX [Concomitant]
     Indication: STENT PLACEMENT
  5. DITROPAN ER [Concomitant]
     Indication: HYPERTONIC BLADDER
  6. RAMIPREXIME [Concomitant]
     Indication: BLOOD PRESSURE INCREASED
  7. LEXPRO [Concomitant]
     Indication: DEPRESSION
  8. GENERIC ZANTAC [Concomitant]
     Indication: GASTRIC DISORDER
  9. JANUVIA [Concomitant]
     Indication: DIABETES MELLITUS
  10. METOPROLOL SUCCINATE EXTENDED RELEASE [Concomitant]
     Indication: BLOOD PRESSURE INCREASED

REACTIONS (1)
  - EAR DISCOMFORT [None]
